FAERS Safety Report 5471004-5 (Version None)
Quarter: 2007Q3

REPORT INFORMATION
  Report Type: 
  Country: None (occurrence: None)
  Receive Date: 20070928
  Receipt Date: 20070921
  Transmission Date: 20080115
  Serious: Yes (Hospitalization)
  Sender: FDA-Public Use
  Company Number: B0415673A

PATIENT
  Age: 53 Year
  Sex: Female
  Weight: 56 kg

DRUGS (4)
  1. ZIAGEN [Suspect]
     Indication: HIV INFECTION
     Dosage: 300MG TWICE PER DAY
     Route: 048
     Dates: start: 20060203, end: 20060217
  2. REYATAZ [Concomitant]
     Dosage: 150MG TWICE PER DAY
     Route: 048
     Dates: start: 20060203, end: 20060217
  3. VIREAD [Concomitant]
     Dosage: 245MG PER DAY
     Route: 048
     Dates: start: 20040122, end: 20060217
  4. NORVIR [Concomitant]
     Dosage: 120MG PER DAY
     Route: 048
     Dates: start: 20000902, end: 20060217

REACTIONS (5)
  - AGRANULOCYTOSIS [None]
  - CHILLS [None]
  - HYPERSENSITIVITY [None]
  - MYALGIA [None]
  - PYREXIA [None]
